FAERS Safety Report 6717142-8 (Version None)
Quarter: 2010Q2

REPORT INFORMATION
  Report Type: 
  Country: None (occurrence: None)
  Receive Date: 20100505
  Receipt Date: 20100423
  Transmission Date: 20101027
  Serious: Yes (Death)
  Sender: FDA-Public Use
  Company Number: 2010AP000648

PATIENT
  Age: 66 Year
  Sex: Female

DRUGS (2)
  1. CYCLOSPORINE [Suspect]
     Indication: IMMUNOSUPPRESSANT DRUG THERAPY
     Dosage: 100 MG; BID; PO
     Route: 048
  2. PREDNISONE TAB [Concomitant]

REACTIONS (10)
  - ACUTE LEUKAEMIA [None]
  - ACUTE MYELOID LEUKAEMIA [None]
  - ANAEMIA [None]
  - LEUKOCYTOSIS [None]
  - MARROW HYPERPLASIA [None]
  - MONOCYTE PERCENTAGE INCREASED [None]
  - NEUTROPHIL PERCENTAGE DECREASED [None]
  - PAROTITIS [None]
  - SYNCOPE [None]
  - THROMBOCYTOPENIA [None]
